FAERS Safety Report 7644400-5 (Version None)
Quarter: 2011Q3

REPORT INFORMATION
  Report Type: 
  Country: None (occurrence: None)
  Receive Date: 20110729
  Receipt Date: 20110719
  Transmission Date: 20111222
  Serious: Yes (Other)
  Sender: FDA-Public Use
  Company Number: US-ROCHE-754620

PATIENT
  Sex: Female
  Weight: 59 kg

DRUGS (1)
  1. ACCUTANE [Suspect]
     Indication: ACNE
     Route: 065
     Dates: start: 19940101, end: 19970101

REACTIONS (12)
  - ABDOMINAL PAIN [None]
  - DEPRESSION [None]
  - COLITIS ULCERATIVE [None]
  - RECTAL HAEMORRHAGE [None]
  - OSTEOARTHRITIS [None]
  - BONE DISORDER [None]
  - ANAEMIA [None]
  - INFLAMMATORY BOWEL DISEASE [None]
  - ARTHRITIS [None]
  - RHEUMATOID ARTHRITIS [None]
  - INTESTINAL OBSTRUCTION [None]
  - BLOOD CHOLESTEROL INCREASED [None]
